FAERS Safety Report 10237572 (Version 2)
Quarter: 2014Q3

REPORT INFORMATION
  Report Type: Spontaneous
  Country: JP (occurrence: JP)
  Receive Date: 20140616
  Receipt Date: 20140701
  Transmission Date: 20150326
  Serious: Yes (Other)
  Sender: FDA-Public Use
  Company Number: JP-ROCHE-1417863

PATIENT
  Sex: Female

DRUGS (2)
  1. LUCENTIS [Suspect]
     Active Substance: RANIBIZUMAB
     Indication: RETINAL VEIN OCCLUSION
     Route: 050
     Dates: start: 20140512, end: 20140512
  2. CALONAL [Concomitant]
     Active Substance: ACETAMINOPHEN

REACTIONS (2)
  - VIIth nerve paralysis [Recovered/Resolved with Sequelae]
  - VIIth nerve paralysis [Unknown]
